FAERS Safety Report 5330047-2 (Version None)
Quarter: 2007Q2

REPORT INFORMATION
  Report Type: 
  Country: None (occurrence: None)
  Receive Date: 20070515
  Receipt Date: 20070501
  Transmission Date: 20071010
  Serious: Yes (Death, Other)
  Sender: FDA-Public Use
  Company Number: 2007RR-07347

PATIENT
  Age: 31 Year
  Sex: Male

DRUGS (6)
  1. RANITIDINE [Suspect]
     Indication: DYSPEPSIA
     Dosage: 150 MG, QD, ORAL
     Route: 048
  2. CLOZARIL [Suspect]
     Indication: SCHIZOPHRENIA
     Dosage: 275 MG, QD, ORAL
     Route: 048
     Dates: start: 20070329
  3. VENLAFAXINE HCL [Suspect]
     Indication: DEPRESSION
     Dosage: 225 MG, QD, ORAL
     Route: 048
  4. BECLOMETHASONE DIPROPIONATE [Concomitant]
  5. DIHYDROCODEINE COMPOUND [Concomitant]
  6. SALBUTAMOL (SALBUTAMOL) [Concomitant]

REACTIONS (5)
  - LOWER RESPIRATORY TRACT INFECTION [None]
  - MALAISE [None]
  - MYALGIA [None]
  - PLEURISY [None]
  - PNEUMONIA [None]
